FAERS Safety Report 26124480 (Version 2)
Quarter: 2025Q4

REPORT INFORMATION
  Report Type: Spontaneous
  Country: EU (occurrence: EU)
  Receive Date: 20251205
  Receipt Date: 20251230
  Transmission Date: 20260118
  Serious: Yes (Other)
  Sender: HETERO
  Company Number: EU-TEVA-VS-3392908

PATIENT
  Age: 56 Year
  Sex: Female

DRUGS (11)
  1. NEBIVOLOL [Suspect]
     Active Substance: NEBIVOLOL
     Indication: Migraine
     Route: 048
  2. NAPROXEN [Suspect]
     Active Substance: NAPROXEN
     Indication: Rheumatoid arthritis
     Dosage: UNK (OCCASIONAL CONSUMPTION OF NAPROXEN DURING FLARE-UPS)
     Route: 065
  3. NAPROXEN [Suspect]
     Active Substance: NAPROXEN
  4. PREDNISONE [Concomitant]
     Active Substance: PREDNISONE
     Indication: Rheumatoid arthritis
     Dosage: UNK
     Route: 065
  5. PREDNISONE [Concomitant]
     Active Substance: PREDNISONE
  6. AMITRIPTYLINE [Concomitant]
     Active Substance: AMITRIPTYLINE
     Indication: Migraine
     Dosage: UNK
     Route: 065
  7. AMITRIPTYLINE [Concomitant]
     Active Substance: AMITRIPTYLINE
  8. TRAMADOL [Concomitant]
     Active Substance: TRAMADOL
     Indication: Migraine
     Dosage: UNK
     Route: 065
  9. TRAMADOL [Concomitant]
     Active Substance: TRAMADOL
  10. HYDROXYCHLOROQUINE [Concomitant]
     Active Substance: HYDROXYCHLOROQUINE
     Indication: Rheumatoid arthritis
     Dosage: UNK
     Route: 065
  11. HYDROXYCHLOROQUINE [Concomitant]
     Active Substance: HYDROXYCHLOROQUINE

REACTIONS (2)
  - Colitis microscopic [Unknown]
  - Product use in unapproved indication [Unknown]
